FAERS Safety Report 12694236 (Version 3)
Quarter: 2017Q2

REPORT INFORMATION
  Report Type: Spontaneous
  Country: BE (occurrence: BE)
  Receive Date: 20160829
  Receipt Date: 20170407
  Transmission Date: 20170830
  Serious: Yes (Other)
  Sender: FDA-Public Use
  Company Number: BE-PFIZER INC-2016395234

PATIENT
  Age: 32 Year
  Sex: Male

DRUGS (7)
  1. IFOSFAMIDE. [Suspect]
     Active Substance: IFOSFAMIDE
     Indication: METASTASES TO BONE
     Dosage: 2000 MG/M2, (DAY 1-3 INCHES A THREE WEEKLY SCHEDULE)
  2. CISPLATIN. [Suspect]
     Active Substance: CISPLATIN
     Indication: SALIVARY GLAND CANCER
     Dosage: 50 MG/M2, UNK
  3. DOXORUBICIN HCL [Suspect]
     Active Substance: DOXORUBICIN HYDROCHLORIDE
     Indication: SALIVARY GLAND CANCER
     Dosage: 50 MG/M2, UNK
  4. CISPLATIN. [Suspect]
     Active Substance: CISPLATIN
     Indication: METASTASES TO BONE
     Dosage: UNK (30-40 MG/M2)
  5. DOXORUBICIN HCL [Suspect]
     Active Substance: DOXORUBICIN HYDROCHLORIDE
     Indication: METASTASES TO BONE
     Dosage: 20 MG/M2, UNK
  6. IFOSFAMIDE. [Suspect]
     Active Substance: IFOSFAMIDE
     Indication: SALIVARY GLAND CANCER
  7. DENOSUMAB [Concomitant]
     Active Substance: DENOSUMAB
     Dosage: UNK, MONTHLY

REACTIONS (3)
  - Nausea [Unknown]
  - Decreased appetite [Unknown]
  - Febrile neutropenia [Unknown]
